FAERS Safety Report 9555314 (Version 1)
Quarter: 2013Q3

REPORT INFORMATION
  Report Type: Spontaneous
  Country: US (occurrence: None)
  Receive Date: 20130925
  Receipt Date: 20130925
  Transmission Date: 20140515
  Serious: No
  Sender: FDA-Public Use
  Company Number: None

PATIENT
  Age: 73 Year
  Sex: Male
  Weight: 103.4 kg

DRUGS (2)
  1. VALPROIC ACID [Suspect]
     Indication: DEPRESSION
     Route: 048
     Dates: start: 20130806, end: 20130812
  2. SPIRONOLACTONE [Suspect]
     Indication: CARDIAC FAILURE CONGESTIVE
     Route: 048
     Dates: start: 20130728, end: 20130808

REACTIONS (2)
  - Intestinal obstruction [None]
  - Hyperkalaemia [None]
